FAERS Safety Report 11363374 (Version 1)
Quarter: 2015Q3

REPORT INFORMATION
  Report Type: Spontaneous
  Country: US (occurrence: US)
  Receive Date: 20150811
  Receipt Date: 20150811
  Transmission Date: 20151125
  Serious: No
  Sender: FDA-Public Use
  Company Number: US-ASTRAZENECA-2015SE74781

PATIENT
  Age: 59 Year
  Sex: Female

DRUGS (2)
  1. BYDUREON [Suspect]
     Active Substance: EXENATIDE
     Indication: TYPE 2 DIABETES MELLITUS
     Route: 058
     Dates: start: 201505
  2. JARDIANCE [Concomitant]
     Active Substance: EMPAGLIFLOZIN

REACTIONS (9)
  - Drug ineffective [Unknown]
  - Weight decreased [Unknown]
  - Injection site nodule [Unknown]
  - Injection site erythema [Unknown]
  - Product quality issue [Unknown]
  - Contusion [Unknown]
  - Injection site scar [Unknown]
  - Injection site pruritus [Unknown]
  - Injection site swelling [Unknown]
